FAERS Safety Report 4638471-8 (Version None)
Quarter: 2005Q2

REPORT INFORMATION
  Report Type: 
  Country: None (occurrence: None)
  Receive Date: 20050408
  Receipt Date: 20030320
  Transmission Date: 20051028
  Serious: No
  Sender: FDA-Public Use
  Company Number: 5038

PATIENT
  Age: 19 Day
  Sex: Female

DRUGS (1)
  1. MIDAZOLAM HCL [Suspect]
     Dosage: 0.7 MG TOTAL; IV
     Route: 042
     Dates: start: 20020319

REACTIONS (1)
  - GRAND MAL CONVULSION [None]
